FAERS Safety Report 9349249 (Version 3)
Quarter: 2013Q4

REPORT INFORMATION
  Report Type: Spontaneous
  Country: US (occurrence: US)
  Receive Date: 20130614
  Receipt Date: 20131018
  Transmission Date: 20140711
  Serious: Yes (Death)
  Sender: FDA-Public Use
  Company Number: US-BRISTOL-MYERS SQUIBB COMPANY-19009380

PATIENT
  Age: 52 Year
  Sex: Male
  Weight: 108.84 kg

DRUGS (1)
  1. BYETTA [Suspect]
     Indication: TYPE 2 DIABETES MELLITUS
     Dates: start: 20060930, end: 20091024

REACTIONS (1)
  - Pancreatic carcinoma [Fatal]
